FAERS Safety Report 22315680 (Version 1)
Quarter: 2023Q2

REPORT INFORMATION
  Report Type: Spontaneous
  Country: US (occurrence: None)
  Receive Date: 20230511
  Receipt Date: 20230511
  Transmission Date: 20230721
  Serious: Yes (Death)
  Sender: FDA-Public Use
  Company Number: None

PATIENT
  Age: 51 Year
  Sex: Female

DRUGS (1)
  1. TEZSPIRE [Suspect]
     Active Substance: TEZEPELUMAB-EKKO
     Dosage: OTHER QUANTITY : 210MG/1.91ML;?OTHER FREQUENCY : OTHER;?
     Route: 058
     Dates: start: 202212, end: 202305

REACTIONS (1)
  - Death [None]

NARRATIVE: CASE EVENT DATE: 20230511
